FAERS Safety Report 11439568 (Version 1)
Quarter: 2015Q3

REPORT INFORMATION
  Report Type: Spontaneous
  Country: US (occurrence: US)
  Receive Date: 20150901
  Receipt Date: 20150901
  Transmission Date: 20151125
  Serious: No
  Sender: FDA-Public Use
  Company Number: US-ROCHE-1073506

PATIENT
  Sex: Female

DRUGS (3)
  1. RIBASPHERE [Suspect]
     Active Substance: RIBAVIRIN
     Indication: CHRONIC HEPATITIS C
     Dosage: 600/400 DIVIDED DOSE
     Route: 048
     Dates: start: 20120519
  2. PEGASYS [Suspect]
     Active Substance: PEGINTERFERON ALFA-2A
     Indication: CHRONIC HEPATITIS C
     Route: 058
     Dates: start: 20120519
  3. TELAPREVIR [Suspect]
     Active Substance: TELAPREVIR
     Indication: CHRONIC HEPATITIS C
     Route: 065
     Dates: start: 20120519

REACTIONS (8)
  - Decreased appetite [Unknown]
  - Glossodynia [Unknown]
  - Feeling abnormal [Unknown]
  - Oral discomfort [Unknown]
  - Amnesia [Unknown]
  - Sluggishness [Unknown]
  - Haemoglobin decreased [Unknown]
  - Abdominal discomfort [Unknown]
